FAERS Safety Report 7538106-0 (Version None)
Quarter: 2011Q2

REPORT INFORMATION
  Report Type: 
  Country: None (occurrence: None)
  Receive Date: 20110609
  Receipt Date: 20010403
  Transmission Date: 20111010
  Serious: Yes (Death)
  Sender: FDA-Public Use
  Company Number: PHBS2001CA03398

PATIENT
  Sex: Female

DRUGS (1)
  1. CLOZARIL [Suspect]
     Dates: start: 19941128

REACTIONS (1)
  - MYOCARDIAL INFARCTION [None]
